FAERS Safety Report 23494060 (Version 1)
Quarter: 2024Q1

REPORT INFORMATION
  Report Type: Spontaneous
  Country: US (occurrence: US)
  Receive Date: 20240207
  Receipt Date: 20240207
  Transmission Date: 20240410
  Serious: Yes (Other)
  Sender: FDA-Public Use
  Company Number: US-002147023-NVSC2024US024372

PATIENT
  Sex: Female

DRUGS (1)
  1. LEQVIO [Suspect]
     Active Substance: INCLISIRAN SODIUM
     Indication: Hyperlipidaemia
     Dosage: 284 MG, AFTER INITIAL DOSE, PATIENT WAS INJECTED 3 MONTHS LATER
     Route: 058

REACTIONS (3)
  - Diverticulitis [Unknown]
  - Blood cholesterol decreased [Unknown]
  - Uterine leiomyoma [Unknown]
